FAERS Safety Report 11411902 (Version 2)
Quarter: 2016Q4

REPORT INFORMATION
  Report Type: Spontaneous
  Country: US (occurrence: US)
  Receive Date: 20150824
  Receipt Date: 20161229
  Transmission Date: 20170206
  Serious: No
  Sender: FDA-Public Use
  Company Number: US-ASTRAZENECA-2015SE78450

PATIENT
  Sex: Female
  Weight: 47.6 kg

DRUGS (8)
  1. TYLENOL [Concomitant]
     Active Substance: ACETAMINOPHEN
     Indication: PAIN
     Dosage: AS REQUIRED
  2. ALEVE [Concomitant]
     Active Substance: NAPROXEN SODIUM
     Indication: PAIN
     Dosage: AS REQUIRED
  3. REMERON [Concomitant]
     Active Substance: MIRTAZAPINE
     Indication: ABDOMINAL DISCOMFORT
  4. TUDORZA PRESSAIR [Suspect]
     Active Substance: ACLIDINIUM BROMIDE
     Indication: CHRONIC OBSTRUCTIVE PULMONARY DISEASE
     Dosage: 400 MICROGRAMS,TWO TIMES A DAY,  3 TO 4 WEEKS AGO
     Route: 055
  5. TUDORZA PRESSAIR [Suspect]
     Active Substance: ACLIDINIUM BROMIDE
     Indication: CHRONIC OBSTRUCTIVE PULMONARY DISEASE
     Dosage: ONE INHALATION EVERY 12 HOURS
     Route: 055
  6. FOSAMAX [Concomitant]
     Active Substance: ALENDRONATE SODIUM
     Indication: OSTEOPOROSIS
  7. BABY ASPIRIN [Concomitant]
     Active Substance: ASPIRIN
     Indication: CARDIOMYOPATHY
     Dosage: 81.0MG UNKNOWN
  8. ZYRTEC [Concomitant]
     Active Substance: CETIRIZINE HYDROCHLORIDE
     Indication: MULTIPLE ALLERGIES

REACTIONS (13)
  - Malaise [Unknown]
  - Head discomfort [Unknown]
  - Drug hypersensitivity [Unknown]
  - Intentional product misuse [Unknown]
  - Osteoporosis [Unknown]
  - Ear discomfort [Unknown]
  - Off label use [Unknown]
  - Product use issue [Unknown]
  - Bone pain [Not Recovered/Not Resolved]
  - Device malfunction [Unknown]
  - Myalgia [Not Recovered/Not Resolved]
  - Nasal congestion [Unknown]
  - Tremor [Unknown]
